FAERS Safety Report 17974495 (Version 3)
Quarter: 2020Q4

REPORT INFORMATION
  Report Type: Spontaneous
  Country: US (occurrence: US)
  Receive Date: 20200702
  Receipt Date: 20201113
  Transmission Date: 20210113
  Serious: Yes (Other)
  Sender: FDA-Public Use
  Company Number: US-PFIZER INC-2020252881

PATIENT
  Age: 62 Year
  Sex: Female

DRUGS (2)
  1. XELJANZ XR [Suspect]
     Active Substance: TOFACITINIB CITRATE
     Indication: RHEUMATOID ARTHRITIS
     Dosage: 11 MG, 1X/DAY
     Route: 048
     Dates: start: 202003
  2. MELOXICAM. [Concomitant]
     Active Substance: MELOXICAM
     Indication: PAIN
     Dosage: UNK, AS NEEDED

REACTIONS (12)
  - Rib fracture [Unknown]
  - Skin infection [Unknown]
  - Feeling abnormal [Recovered/Resolved]
  - Basal cell carcinoma [Unknown]
  - Foot deformity [Unknown]
  - Abdominal discomfort [Recovered/Resolved]
  - Pain in extremity [Unknown]
  - Headache [Recovering/Resolving]
  - Blood cholesterol increased [Unknown]
  - Constipation [Unknown]
  - Fall [Unknown]
  - Depressed mood [Unknown]

NARRATIVE: CASE EVENT DATE: 2020
